FAERS Safety Report 14813473 (Version 2)
Quarter: 2018Q2

REPORT INFORMATION
  Report Type: Report from Study
  Country: NL (occurrence: NL)
  Receive Date: 20180426
  Receipt Date: 20180501
  Transmission Date: 20180711
  Serious: Yes (Death)
  Sender: FDA-Public Use
  Company Number: NL-TEVA-2018-NL-884716

PATIENT

DRUGS (5)
  1. PREDNISONE. [Suspect]
     Active Substance: PREDNISONE
     Indication: BURKITT^S LYMPHOMA
     Dosage: 60 MG/M2 ON DAY 1-7
     Route: 065
  2. METHOTREXATE. [Suspect]
     Active Substance: METHOTREXATE
     Indication: BURKITT^S LYMPHOMA
     Dosage: METHOTREXATE PLUS HYDROCORTISONE (15MG) ON DAY 1
     Route: 065
  3. HYDROCORTISONE. [Suspect]
     Active Substance: HYDROCORTISONE
     Indication: BURKITT^S LYMPHOMA
     Dosage: METHOTREXATE PLUS HYDROCORTISONE (15MG)
     Route: 065
  4. VINCRISTINE [Suspect]
     Active Substance: VINCRISTINE
     Indication: BURKITT^S LYMPHOMA
     Dosage: 1 MG/M2 ON DAY 1
     Route: 042
  5. CYCLOPHOSPHAMIDE. [Suspect]
     Active Substance: CYCLOPHOSPHAMIDE
     Indication: BURKITT^S LYMPHOMA
     Dosage: 300 MG/M2 ON DAY 1
     Route: 042

REACTIONS (1)
  - Sepsis [Fatal]
